FAERS Safety Report 5465621-6 (Version None)
Quarter: 2007Q3

REPORT INFORMATION
  Report Type: 
  Country: None (occurrence: None)
  Receive Date: 20070924
  Receipt Date: 20070917
  Transmission Date: 20080115
  Serious: Yes (Other)
  Sender: FDA-Public Use
  Company Number: ZA-AVENTIS-200718528GDDC

PATIENT
  Sex: Female

DRUGS (7)
  1. LANTUS [Suspect]
     Route: 058
     Dates: start: 20070101
  2. APIDRA [Suspect]
     Dosage: FREQUENCY: BEFORE MEALS
     Route: 058
     Dates: start: 20070101
  3. COVERSYL                           /00790701/ [Concomitant]
     Indication: HYPERTENSION
     Route: 048
  4. TEN-BLOKA [Concomitant]
     Indication: HYPERTENSION
     Route: 048
  5. LIPITOR [Concomitant]
     Route: 048
  6. ADCO-RETIC [Concomitant]
     Indication: HYPERTENSION
     Dosage: DOSE QUANTITY: 1
     Route: 048
  7. GLUCOPHAGE [Concomitant]
     Route: 048

REACTIONS (1)
  - WEIGHT INCREASED [None]
